FAERS Safety Report 12802052 (Version 1)
Quarter: 2016Q4

REPORT INFORMATION
  Report Type: Spontaneous
  Country: US (occurrence: US)
  Receive Date: 20161003
  Receipt Date: 20161003
  Transmission Date: 20170207
  Serious: No
  Sender: FDA-Public Use
  Company Number: US-JAZZ-2016-US-012021

PATIENT
  Sex: Female

DRUGS (29)
  1. HYDROXYZINE HCL [Concomitant]
     Active Substance: HYDROXYZINE HYDROCHLORIDE
  2. BUPROPION. [Concomitant]
     Active Substance: BUPROPION
  3. LITHIUM CARBONATE. [Concomitant]
     Active Substance: LITHIUM CARBONATE
  4. REGLAN [Concomitant]
     Active Substance: METOCLOPRAMIDE HYDROCHLORIDE
  5. VITAMIN D3 [Concomitant]
     Active Substance: CHOLECALCIFEROL
  6. XYREM [Suspect]
     Active Substance: SODIUM OXYBATE
     Dosage: DOSE ADJUSTMENTS
     Route: 048
     Dates: start: 201508, end: 201510
  7. PROAIR HFA [Concomitant]
     Active Substance: ALBUTEROL SULFATE
  8. ARMOUR THYROID [Concomitant]
     Active Substance: THYROID, PORCINE
  9. MORA GTTS [Concomitant]
  10. SPARGA GTTS [Concomitant]
  11. VENDEROL GTTS [Concomitant]
  12. LEVOTHYROXINE SODIUM. [Concomitant]
     Active Substance: LEVOTHYROXINE SODIUM
  13. HYDROXYZINE HCL [Concomitant]
     Active Substance: HYDROXYZINE HYDROCHLORIDE
  14. DIGESTA [Concomitant]
  15. PROGESTERONE. [Concomitant]
     Active Substance: PROGESTERONE
  16. APRI [Concomitant]
     Active Substance: DESOGESTREL\ETHINYL ESTRADIOL
  17. SACCHAROMYCES BOULARDII [Concomitant]
     Active Substance: SACCHAROMYCES CEREVISIAE
  18. SERRAPEPTASE [Concomitant]
     Active Substance: SERRAPEPTASE
  19. VERAPAMIL [Concomitant]
     Active Substance: VERAPAMIL HYDROCHLORIDE
  20. XYREM [Suspect]
     Active Substance: SODIUM OXYBATE
     Dosage: 3.75 G, BID
     Route: 048
     Dates: start: 201510
  21. NUVIGIL [Concomitant]
     Active Substance: ARMODAFINIL
  22. HOUTTUYNIA GTTS [Concomitant]
  23. SAMENTO GTTS [Concomitant]
  24. HAIR, SKIN + NAILS [Concomitant]
     Active Substance: MINERALS\VITAMINS
  25. HYDROCORTISONE. [Concomitant]
     Active Substance: HYDROCORTISONE
  26. MAGNESIUM MALATE [Concomitant]
  27. ENSKYCE [Concomitant]
     Active Substance: DESOGESTREL\ETHINYL ESTRADIOL
  28. VENLAFAXINE HCL [Concomitant]
     Active Substance: VENLAFAXINE HYDROCHLORIDE
  29. XYREM [Suspect]
     Active Substance: SODIUM OXYBATE
     Indication: NARCOLEPSY
     Dosage: 2.25 G, BID
     Route: 048
     Dates: start: 201507, end: 201508

REACTIONS (1)
  - Feeling abnormal [Not Recovered/Not Resolved]
